FAERS Safety Report 14710808 (Version 1)
Quarter: 2018Q2

REPORT INFORMATION
  Report Type: Spontaneous
  Country: US (occurrence: US)
  Receive Date: 20180403
  Receipt Date: 20180403
  Transmission Date: 20180711
  Serious: Yes (Death, Other)
  Sender: FDA-Public Use
  Company Number: US-TARO PHARMACEUTICALS USA.,INC-2018SUN00150

PATIENT
  Sex: Female

DRUGS (1)
  1. ACETAMINOPHEN. [Suspect]
     Active Substance: ACETAMINOPHEN
     Indication: PRODUCT USED FOR UNKNOWN INDICATION
     Dosage: UNK
     Route: 065

REACTIONS (11)
  - Tachycardia [Unknown]
  - Anion gap [Unknown]
  - Hypoglycaemia [Unknown]
  - Coagulopathy [Unknown]
  - Acute kidney injury [Unknown]
  - Hepatotoxicity [Unknown]
  - Toxicity to various agents [Fatal]
  - Hypotension [Unknown]
  - Respiratory depression [Unknown]
  - Metabolic acidosis [Unknown]
  - Depressed level of consciousness [Unknown]
